FAERS Safety Report 6681512-7 (Version None)
Quarter: 2010Q2

REPORT INFORMATION
  Report Type: 
  Country: None (occurrence: None)
  Receive Date: 20100413
  Receipt Date: 20100413
  Transmission Date: 20101027
  Serious: Yes (Hospitalization)
  Sender: FDA-Public Use
  Company Number: None

PATIENT
  Sex: Male
  Weight: 100.52 kg

DRUGS (2)
  1. CISPLATIN [Suspect]
     Dosage: 153 MG
  2. GEMCITABINE HCL [Suspect]
     Dosage: 4360 MG

REACTIONS (1)
  - TRANSIENT ISCHAEMIC ATTACK [None]
